FAERS Safety Report 6238640-X (Version None)
Quarter: 2009Q2

REPORT INFORMATION
  Report Type: 
  Country: None (occurrence: None)
  Receive Date: 20090622
  Receipt Date: 20090616
  Transmission Date: 20091009
  Serious: Yes (Hospitalization)
  Sender: FDA-Public Use
  Company Number: IE-AMGEN-UK348533

PATIENT
  Age: 63 Year
  Sex: Male

DRUGS (6)
  1. ARANESP [Suspect]
     Indication: ANAEMIA
     Route: 058
     Dates: start: 20090204, end: 20090309
  2. NEORECORMON [Suspect]
     Indication: ANAEMIA
     Route: 058
     Dates: start: 20081007, end: 20090204
  3. ANAGRELIDE HCL [Concomitant]
     Route: 065
  4. ACETYLSALICYLIC ACID [Concomitant]
     Route: 065
  5. LANSOPRAZOLE [Concomitant]
     Route: 065
  6. ZESTORETIC [Concomitant]
     Route: 065

REACTIONS (1)
  - APLASIA PURE RED CELL [None]
